FAERS Safety Report 7633527-X (Version None)
Quarter: 2011Q3

REPORT INFORMATION
  Report Type: 
  Country: None (occurrence: None)
  Receive Date: 20110701
  Receipt Date: 20100429
  Transmission Date: 20111222
  Serious: Yes (Hospitalization)
  Sender: FDA-Public Use
  Company Number: 7003236

PATIENT
  Age: 63 Year
  Sex: Female
  Weight: 54 kg

DRUGS (5)
  1. REBIF [Suspect]
     Indication: SECONDARY PROGRESSIVE MULTIPLE SCLEROSIS
     Dosage: 44 MCG, 3 IN 1 WK, SUBCUTANEOUS
     Route: 058
     Dates: start: 20020708
  2. UNSPECIFIED MEDICATIONS (ALL OTHER THERAPEUTIC PRODUCTS) [Concomitant]
  3. UNSPECIFIED MEDICATION (ALL OTHER THERAPEUTIC PRODUCTS) [Concomitant]
  4. UNSPECIFIED MEDICATION (ALL OTHER THERAPEUTIC PRODUCTS) [Concomitant]
  5. COUMADIN [Concomitant]

REACTIONS (9)
  - INJECTION SITE CELLULITIS [None]
  - FEELING HOT [None]
  - HAEMOGLOBIN DECREASED [None]
  - INFLUENZA LIKE ILLNESS [None]
  - ERYTHEMA [None]
  - OPEN WOUND [None]
  - HYPERSENSITIVITY [None]
  - SKIN MASS [None]
  - SKIN TIGHTNESS [None]
